FAERS Safety Report 5504730-X (Version None)
Quarter: 2007Q4

REPORT INFORMATION
  Report Type: 
  Country: None (occurrence: None)
  Receive Date: 20071031
  Receipt Date: 20071016
  Transmission Date: 20080405
  Serious: Yes (Other)
  Sender: FDA-Public Use
  Company Number: SPV1-2007-04538

PATIENT
  Age: 48 Year
  Sex: Female

DRUGS (1)
  1. ANAGRELIDE HYDROCHLORIDE [Suspect]
     Indication: THROMBOCYTOPENIA
     Dosage: ORAL
     Route: 048

REACTIONS (1)
  - CRYOGLOBULINAEMIA [None]
